FAERS Safety Report 6309290-1 (Version None)
Quarter: 2009Q3

REPORT INFORMATION
  Report Type: 
  Country: None (occurrence: None)
  Receive Date: 20090814
  Receipt Date: 20090804
  Transmission Date: 20100115
  Serious: Yes (Death)
  Sender: FDA-Public Use
  Company Number: GB-PFIZER INC-2009250307

PATIENT

DRUGS (3)
  1. DOXORUBICIN HCL [Suspect]
     Dosage: UNK
  2. VINCRISTINE SULFATE [Suspect]
     Dosage: UNK
  3. COSMEGEN [Suspect]
     Dosage: UNK

REACTIONS (2)
  - DISEASE RECURRENCE [None]
  - NEPHROBLASTOMA [None]
